FAERS Safety Report 17884042 (Version 1)
Quarter: 2020Q2

REPORT INFORMATION
  Report Type: Spontaneous
  Country: US (occurrence: US)
  Receive Date: 20200611
  Receipt Date: 20200611
  Transmission Date: 20200714
  Serious: Yes (Other)
  Sender: FDA-Public Use
  Company Number: US-PFIZER INC-2020225052

PATIENT
  Age: 11 Year
  Weight: 36 kg

DRUGS (1)
  1. MORPHINE SULFATE. [Suspect]
     Active Substance: MORPHINE SULFATE
     Indication: ANAESTHESIA
     Dosage: 15 MG

REACTIONS (4)
  - Lateral medullary syndrome [Unknown]
  - Intracranial pressure increased [Unknown]
  - Diplopia [Unknown]
  - Dysphagia [Unknown]
